FAERS Safety Report 8733063 (Version 3)
Quarter: 2012Q4

REPORT INFORMATION
  Report Type: 
  Country: SE (occurrence: SE)
  Receive Date: 20120820
  Receipt Date: 20121011
  Transmission Date: 20130627
  Serious: Yes (Hospitalization, Other)
  Sender: FDA-Public Use
  Company Number: SE-ABBOTT-12P-150-0969403-00

PATIENT
  Age: 52 None
  Sex: Female

DRUGS (8)
  1. HUMIRA 40 MG/ 0.8 ML PRE-FILLED SYRINGE [Suspect]
     Indication: RHEUMATOID ARTHRITIS
     Dates: start: 20040831, end: 20120415
  2. ACETYLCYSTEIN ALTERNOVA [Concomitant]
     Indication: PRODUCT USED FOR UNKNOWN INDICATION
  3. METHOTREXATE ORION [Concomitant]
     Indication: PRODUCT USED FOR UNKNOWN INDICATION
  4. FOLIC ACID [Concomitant]
     Indication: PRODUCT USED FOR UNKNOWN INDICATION
  5. ALVEDON [Concomitant]
     Indication: PRODUCT USED FOR UNKNOWN INDICATION
  6. VOLTAREN [Concomitant]
     Indication: PRODUCT USED FOR UNKNOWN INDICATION
  7. KETOPROFEN [Concomitant]
     Indication: PRODUCT USED FOR UNKNOWN INDICATION
  8. PREDNISOLON [Concomitant]
     Indication: PRODUCT USED FOR UNKNOWN INDICATION

REACTIONS (8)
  - Antinuclear antibody [Unknown]
  - General physical health deterioration [Unknown]
  - Arthritis [Unknown]
  - Histone antibody positive [Unknown]
  - Pleurisy [Recovered/Resolved]
  - Fatigue [Unknown]
  - Dyspnoea [Recovered/Resolved]
  - Flank pain [Unknown]
